FAERS Safety Report 23618801 (Version 3)
Quarter: 2024Q1

REPORT INFORMATION
  Report Type: Spontaneous
  Country: US (occurrence: US)
  Receive Date: 20240311
  Receipt Date: 20240327
  Transmission Date: 20240410
  Serious: Yes (Other)
  Sender: FDA-Public Use
  Company Number: US-PFIZER INC-202400059747

PATIENT
  Age: 82 Year
  Sex: Female
  Weight: 60.33 kg

DRUGS (1)
  1. NIFEDIPINE [Suspect]
     Active Substance: NIFEDIPINE
     Indication: Hypertension
     Dosage: 30 MG, ONE IN THE NIGHT
     Route: 048
     Dates: start: 2017, end: 2018

REACTIONS (7)
  - Syncope [Unknown]
  - Drug hypersensitivity [Unknown]
  - Pharyngeal swelling [Unknown]
  - Dyspnoea [Unknown]
  - Dysphagia [Unknown]
  - Ear swelling [Unknown]
  - Blood pressure decreased [Unknown]
